FAERS Safety Report 12404111 (Version 1)
Quarter: 2016Q2

REPORT INFORMATION
  Report Type: Spontaneous
  Country: US (occurrence: US)
  Receive Date: 20160525
  Receipt Date: 20160525
  Transmission Date: 20160815
  Serious: Yes (Hospitalization)
  Sender: FDA-Public Use
  Company Number: US-SA-2015SA163396

PATIENT
  Age: 59 Year
  Sex: Male
  Weight: 68 kg

DRUGS (6)
  1. LEUCOVORIN. [Suspect]
     Active Substance: LEUCOVORIN
     Route: 065
  2. IRINOTECAN [Suspect]
     Active Substance: IRINOTECAN
     Route: 065
  3. CAPECITABINE. [Concomitant]
     Active Substance: CAPECITABINE
     Indication: PANCREATIC CARCINOMA METASTATIC
     Route: 048
     Dates: start: 20150608
  4. 5-FU [Suspect]
     Active Substance: FLUOROURACIL
     Route: 065
  5. ELOXATIN [Suspect]
     Active Substance: OXALIPLATIN
     Route: 065
  6. PLACEBO [Concomitant]
     Active Substance: UNSPECIFIED INGREDIENT
     Indication: PANCREATIC CARCINOMA METASTATIC
     Route: 048
     Dates: start: 20150608

REACTIONS (2)
  - Diarrhoea [Not Recovered/Not Resolved]
  - Abdominal pain [Not Recovered/Not Resolved]

NARRATIVE: CASE EVENT DATE: 20150810
